FAERS Safety Report 24059448 (Version 1)
Quarter: 2024Q3

REPORT INFORMATION
  Report Type: Spontaneous
  Country: US (occurrence: US)
  Receive Date: 20240708
  Receipt Date: 20240708
  Transmission Date: 20241017
  Serious: No
  Sender: BAUSCH AND LOMB
  Company Number: US-BAUSCH-BL-2024-010074

PATIENT
  Age: 72 Year
  Sex: Female

DRUGS (1)
  1. WELLBUTRIN XL [Suspect]
     Active Substance: BUPROPION HYDROCHLORIDE
     Indication: Depression
     Route: 048
     Dates: start: 2003

REACTIONS (4)
  - Defaecation urgency [Unknown]
  - Product residue present [Unknown]
  - Diarrhoea [Unknown]
  - Drug ineffective [Unknown]
